FAERS Safety Report 15367146 (Version 1)
Quarter: 2018Q3

REPORT INFORMATION
  Report Type: Spontaneous
  Country: US (occurrence: US)
  Receive Date: 20180910
  Receipt Date: 20180910
  Transmission Date: 20181010
  Serious: No
  Sender: FDA-Public Use
  Company Number: US-ALLERGAN-1809747US

PATIENT
  Sex: Male

DRUGS (3)
  1. CARAFATE [Suspect]
     Active Substance: SUCRALFATE
     Indication: DUODENOGASTRIC REFLUX
     Dosage: 10 ML, TID
     Route: 065
     Dates: start: 2008
  2. ZOLOFT [Concomitant]
     Active Substance: SERTRALINE HYDROCHLORIDE
     Dosage: 25 MG, UNK
     Route: 065
  3. AMOXICILLIN. [Concomitant]
     Active Substance: AMOXICILLIN
     Dosage: 250 ML 10 DAYS MONTLY
     Route: 065

REACTIONS (4)
  - Vitamin B6 increased [Unknown]
  - Off label use [Unknown]
  - Inappropriate schedule of drug administration [Unknown]
  - Vitamin B12 deficiency [Unknown]
